FAERS Safety Report 11328129 (Version 2)
Quarter: 2015Q3

REPORT INFORMATION
  Report Type: Spontaneous
  Country: US (occurrence: US)
  Receive Date: 20150731
  Receipt Date: 20150820
  Transmission Date: 20151125
  Serious: No
  Sender: FDA-Public Use
  Company Number: US-UNITED THERAPEUTICS-UNT-2015-009006

PATIENT
  Sex: Male
  Weight: 99.77 kg

DRUGS (4)
  1. SILDENAFIL. [Concomitant]
     Active Substance: SILDENAFIL
     Indication: PRODUCT USED FOR UNKNOWN INDICATION
  2. REMODULIN [Suspect]
     Active Substance: TREPROSTINIL
     Indication: PULMONARY HYPERTENSION
     Dosage: 0.002 ?G/KG/MIN, CONTINUING
     Route: 041
     Dates: start: 20150722
  3. REMODULIN [Suspect]
     Active Substance: TREPROSTINIL
     Dosage: 0.0104 ?G/KG, CONTINUING
     Route: 041
  4. REMODULIN [Suspect]
     Active Substance: TREPROSTINIL
     Dosage: 0.002 ?G/KG, CONTINUING
     Route: 041
     Dates: start: 20150722

REACTIONS (6)
  - Headache [Unknown]
  - Nasal congestion [Unknown]
  - Nausea [Unknown]
  - Eye oedema [Unknown]
  - Face oedema [Unknown]
  - Vomiting [Unknown]

NARRATIVE: CASE EVENT DATE: 2015
